FAERS Safety Report 9746961 (Version 1)
Quarter: 2013Q4

REPORT INFORMATION
  Report Type: Spontaneous
  Country: ES (occurrence: ES)
  Receive Date: 20131211
  Receipt Date: 20131211
  Transmission Date: 20140711
  Serious: Yes (Other)
  Sender: FDA-Public Use
  Company Number: ES-WATSON-2013-22731

PATIENT
  Age: 52 Year
  Sex: Male
  Weight: 68 kg

DRUGS (1)
  1. SILDENAFIL ACTAVIS [Suspect]
     Indication: PULMONARY HYPERTENSION
     Dosage: 75 MG, TID
     Route: 048
     Dates: start: 20131001

REACTIONS (5)
  - Pulmonary hypertension [Not Recovered/Not Resolved]
  - Condition aggravated [Not Recovered/Not Resolved]
  - Dizziness [Not Recovered/Not Resolved]
  - Vomiting [Not Recovered/Not Resolved]
  - Malaise [Not Recovered/Not Resolved]
